FAERS Safety Report 4580060-8 (Version None)
Quarter: 2005Q1

REPORT INFORMATION
  Report Type: 
  Country: None (occurrence: None)
  Receive Date: 20050214
  Receipt Date: 20030130
  Transmission Date: 20050727
  Serious: Yes (Death, Hospitalization)
  Sender: FDA-Public Use
  Company Number: US-MERCK-0302USA00111

PATIENT
  Age: 63 Year
  Sex: Female
  Weight: 50 kg

DRUGS (8)
  1. VIOXX [Suspect]
     Indication: MIGRAINE
     Route: 048
     Dates: start: 20001101, end: 20001101
  2. VIOXX [Suspect]
     Route: 048
     Dates: start: 20001103, end: 20001103
  3. NORVASC [Concomitant]
     Route: 048
  4. PREVACID [Concomitant]
     Route: 065
  5. TYLENOL [Concomitant]
     Route: 065
  6. ASPIRIN [Concomitant]
     Route: 065
  7. PRILOSEC [Concomitant]
     Route: 065
  8. UNIVASC [Concomitant]
     Indication: HYPERTENSION
     Route: 065

REACTIONS (22)
  - AGITATION [None]
  - ARTERIOSCLEROSIS [None]
  - CEREBRAL INFARCTION [None]
  - CEREBROVASCULAR ACCIDENT [None]
  - COMA [None]
  - CRYING [None]
  - DECREASED APPETITE [None]
  - DELIRIUM [None]
  - DYSURIA [None]
  - EMOTIONAL DISORDER [None]
  - ENCEPHALOPATHY [None]
  - FATIGUE [None]
  - FEELING HOT AND COLD [None]
  - GASTROOESOPHAGEAL REFLUX DISEASE [None]
  - INJURY [None]
  - INSOMNIA [None]
  - INTRACRANIAL ANEURYSM [None]
  - NERVE DEGENERATION [None]
  - RESTLESSNESS [None]
  - STRESS [None]
  - THYROID DISORDER [None]
  - VASCULITIS [None]
